FAERS Safety Report 13136340 (Version 2)
Quarter: 2017Q1

REPORT INFORMATION
  Report Type: Spontaneous
  Country: US (occurrence: US)
  Receive Date: 20170121
  Receipt Date: 20170202
  Transmission Date: 20170428
  Serious: No
  Sender: FDA-Public Use
  Company Number: US-009507513-1701USA009482

PATIENT
  Sex: Female

DRUGS (2)
  1. NEXPLANON [Suspect]
     Active Substance: ETONOGESTREL
     Dosage: 1ROD/ 3 YEARS
     Route: 059
     Dates: start: 20160129, end: 20170119
  2. NEXPLANON [Suspect]
     Active Substance: ETONOGESTREL
     Dosage: 1ROD/ 3 YEARS
     Route: 059
     Dates: start: 20170119

REACTIONS (2)
  - No adverse event [Unknown]
  - Device kink [Recovered/Resolved]

NARRATIVE: CASE EVENT DATE: 20170119
